FAERS Safety Report 21084993 (Version 4)
Quarter: 2023Q1

REPORT INFORMATION
  Report Type: Spontaneous
  Country: US (occurrence: US)
  Receive Date: 20220714
  Receipt Date: 20230310
  Transmission Date: 20230418
  Serious: No
  Sender: FDA-Public Use
  Company Number: US-SA-SAC20220712000252

PATIENT
  Age: 45 Year
  Sex: Female

DRUGS (17)
  1. DUPIXENT [Suspect]
     Active Substance: DUPILUMAB
     Indication: Dermatitis atopic
     Dosage: 300 MG, QOW
     Route: 058
     Dates: start: 20190806
  2. CAL CITRATE PLUS VITAMIN D [Concomitant]
  3. CELEXAL [Concomitant]
  4. GABAPENTIN [Concomitant]
     Active Substance: GABAPENTIN
  5. GABAPENTIN [Concomitant]
     Active Substance: GABAPENTIN
  6. MUCINEX D [Concomitant]
     Active Substance: GUAIFENESIN\PSEUDOEPHEDRINE HYDROCHLORIDE
  7. MUCINEX D [Concomitant]
     Active Substance: GUAIFENESIN\PSEUDOEPHEDRINE HYDROCHLORIDE
  8. MYRBETRIQ [Concomitant]
     Active Substance: MIRABEGRON
  9. MYRBETRIQ [Concomitant]
     Active Substance: MIRABEGRON
  10. PROAIR RESPICLICK [Concomitant]
     Active Substance: ALBUTEROL SULFATE
  11. CALCIUM [Concomitant]
     Active Substance: CALCIUM
  12. CYMBALTA [Concomitant]
     Active Substance: DULOXETINE HYDROCHLORIDE
  13. CYMBALTA [Concomitant]
     Active Substance: DULOXETINE HYDROCHLORIDE
  14. VITAMIN D NOS [Concomitant]
     Active Substance: VITAMIN D NOS
  15. CALCIUM CITRATE;VITAMIN D NOS [Concomitant]
  16. CELECOXIB [Concomitant]
     Active Substance: CELECOXIB
  17. REXULTI [Concomitant]
     Active Substance: BREXPIPRAZOLE

REACTIONS (11)
  - Eczema [Not Recovered/Not Resolved]
  - Fungal infection [Not Recovered/Not Resolved]
  - Discomfort [Unknown]
  - Tooth infection [Unknown]
  - Impaired quality of life [Unknown]
  - Eczema asteatotic [Unknown]
  - Condition aggravated [Unknown]
  - Injection site erythema [Not Recovered/Not Resolved]
  - Dermatitis atopic [Not Recovered/Not Resolved]
  - Rash [Not Recovered/Not Resolved]
  - Product dose omission in error [Unknown]

NARRATIVE: CASE EVENT DATE: 20221011
